FAERS Safety Report 19849918 (Version 2)
Quarter: 2025Q3

REPORT INFORMATION
  Report Type: Spontaneous
  Country: US (occurrence: US)
  Receive Date: 20210917
  Receipt Date: 20250916
  Transmission Date: 20251021
  Serious: Yes (Other)
  Sender: CATALYST PHARMA
  Company Number: US-CATALYST PHARMACEUTICALS, INC-2021CAT00378

PATIENT
  Age: 59 Year
  Sex: Female
  Weight: 78.045 kg

DRUGS (16)
  1. FIRDAPSE [Suspect]
     Active Substance: AMIFAMPRIDINE PHOSPHATE
     Indication: Myasthenic syndrome
     Dosage: 1 (10 MG) TO 2 (20 MG) TABS THREE TO FOUR TIMES DAILY (NOT TO EXCEED 8 TABLETS DAILY)
     Route: 048
     Dates: start: 20190326
  2. FIRDAPSE [Suspect]
     Active Substance: AMIFAMPRIDINE PHOSPHATE
     Dosage: 15-20 MG, 4X/DAY
     Route: 048
     Dates: start: 20210108, end: 202101
  3. FIRDAPSE [Suspect]
     Active Substance: AMIFAMPRIDINE PHOSPHATE
     Dosage: 20 MG FOUR TIMES A DAY
     Route: 048
     Dates: start: 20210121
  4. ADVIL [Concomitant]
     Active Substance: IBUPROFEN
     Indication: Headache
     Route: 065
  5. CEVIMELINE [Concomitant]
     Active Substance: CEVIMELINE
     Indication: Dry mouth
     Dosage: 30 MG, AT BEDTIME
     Route: 065
  6. BETAMETHASONE\CLOTRIMAZOLE [Concomitant]
     Active Substance: BETAMETHASONE\CLOTRIMAZOLE
     Indication: Ear dryness
     Dosage: UNK, APPLY DAILY
     Route: 065
  7. DESVENLAFAXINE ER [Concomitant]
     Active Substance: DESVENLAFAXINE SUCCINATE
     Indication: Depression
     Dosage: 100 MG DAILY
     Route: 065
  8. LEVOTHYROXINE [Concomitant]
     Active Substance: LEVOTHYROXINE
     Indication: Hypothyroidism
     Dosage: 75 MCG, EVERY MORNING
     Route: 065
  9. VITAMINS [Concomitant]
     Active Substance: VITAMINS
     Indication: Hypovitaminosis
     Dosage: TABLET ONCE DAILY
     Route: 065
  10. PILOCARPINE [Concomitant]
     Active Substance: PILOCARPINE
     Indication: Dry mouth
     Dosage: 5 MG THREE TIMES A DAY
     Route: 065
  11. PRIVIGEN [Concomitant]
     Active Substance: HUMAN IMMUNOGLOBULIN G
     Indication: Myasthenic syndrome
     Dosage: ONCE A WEEK
     Route: 042
  12. PRIVIGEN [Concomitant]
     Active Substance: HUMAN IMMUNOGLOBULIN G
     Route: 042
  13. SIMVASTATIN [Concomitant]
     Active Substance: SIMVASTATIN
     Indication: Hypercholesterolaemia
     Dosage: 20 MG, AT BEDTIME
     Route: 065
  14. TYLENOL [Concomitant]
     Active Substance: ACETAMINOPHEN
     Indication: Pain
     Route: 065
  15. VITAMIN B12 [Concomitant]
     Active Substance: CYANOCOBALAMIN
     Indication: Hypovitaminosis
     Route: 065
  16. XIIDRA [Concomitant]
     Active Substance: LIFITEGRAST
     Indication: Dry eye
     Dosage: TWO TIMES A DAY
     Route: 065

REACTIONS (4)
  - Fracture [Not Recovered/Not Resolved]
  - Stress [Unknown]
  - Headache [Not Recovered/Not Resolved]
  - Paraesthesia [Not Recovered/Not Resolved]

NARRATIVE: CASE EVENT DATE: 20190411
